FAERS Safety Report 7787831-5 (Version None)
Quarter: 2011Q3

REPORT INFORMATION
  Report Type: 
  Country: None (occurrence: None)
  Receive Date: 20110930
  Receipt Date: 20110921
  Transmission Date: 20111222
  Serious: Yes (Hospitalization)
  Sender: FDA-Public Use
  Company Number: US-BIOGENIDEC-2011BI036369

PATIENT
  Age: 60 Year
  Sex: Male

DRUGS (3)
  1. AVONEX [Suspect]
     Indication: MULTIPLE SCLEROSIS
     Route: 030
     Dates: start: 20040301
  2. AVONEX [Suspect]
     Route: 030
     Dates: start: 20010101, end: 20031101
  3. AVONEX [Suspect]
     Route: 030
     Dates: start: 20031201, end: 20040201

REACTIONS (1)
  - SPINAL FUSION SURGERY [None]
